FAERS Safety Report 20607254 (Version 2)
Quarter: 2022Q1

REPORT INFORMATION
  Report Type: Spontaneous
  Country: US (occurrence: US)
  Receive Date: 20220317
  Receipt Date: 20220331
  Transmission Date: 20220423
  Serious: Yes (Hospitalization)
  Sender: FDA-Public Use
  Company Number: US-TEVA-2022-US-2016793

PATIENT
  Age: 38 Year
  Sex: Female

DRUGS (7)
  1. CLONAZEPAM [Suspect]
     Active Substance: CLONAZEPAM
     Indication: Drug abuse
     Dosage: 5-10MG/DAY
     Route: 048
  2. GABAPENTIN [Suspect]
     Active Substance: GABAPENTIN
     Indication: Drug abuse
     Dosage: UP TO 2400MG TWICE DAILY
     Route: 048
  3. FENTANYL [Suspect]
     Active Substance: FENTANYL
     Indication: Drug abuse
     Dosage: 2 GRAM DAILY;
     Route: 065
  4. DIPHENHYDRAMINE [Interacting]
     Active Substance: DIPHENHYDRAMINE
     Indication: Product used for unknown indication
     Route: 048
     Dates: start: 2020
  5. 4-AMINO-3-PHENYLBUTYRIC ACID [Interacting]
     Active Substance: 4-AMINO-3-PHENYLBUTYRIC ACID
     Indication: Drug withdrawal syndrome
     Dosage: SEVERAL TEASPOONS OF PHENIBUT
     Route: 048
     Dates: start: 202003
  6. 4-AMINO-3-PHENYLBUTYRIC ACID [Interacting]
     Active Substance: 4-AMINO-3-PHENYLBUTYRIC ACID
     Indication: Anxiety
  7. 4-AMINO-3-PHENYLBUTYRIC ACID [Interacting]
     Active Substance: 4-AMINO-3-PHENYLBUTYRIC ACID
     Indication: Detoxification

REACTIONS (11)
  - Drug withdrawal syndrome [Recovering/Resolving]
  - Mental status changes [Recovering/Resolving]
  - Impulsive behaviour [Recovering/Resolving]
  - Paranoia [Recovering/Resolving]
  - Spinal stenosis [Unknown]
  - Spinal fracture [Unknown]
  - Fall [Unknown]
  - Toxicity to various agents [Unknown]
  - Drug abuse [Unknown]
  - Intentional product misuse [Unknown]
  - Drug interaction [Unknown]

NARRATIVE: CASE EVENT DATE: 20200101
